FAERS Safety Report 20481029 (Version 1)
Quarter: 2022Q1

REPORT INFORMATION
  Report Type: Other
  Country: US (occurrence: None)
  Receive Date: 20220216
  Receipt Date: 20220216
  Transmission Date: 20220424
  Serious: No
  Sender: FDA-Public Use
  Company Number: US-ROCHE-3024141

PATIENT
  Sex: Female

DRUGS (3)
  1. OCREVUS [Suspect]
     Active Substance: OCRELIZUMAB
     Indication: Relapsing multiple sclerosis
     Route: 042
  2. BACLOFEN [Concomitant]
     Active Substance: BACLOFEN
  3. SUMATRIPTAN [Concomitant]
     Active Substance: SUMATRIPTAN

REACTIONS (1)
  - Herpes virus infection [Unknown]
